FAERS Safety Report 20576985 (Version 2)
Quarter: 2022Q1

REPORT INFORMATION
  Report Type: Spontaneous
  Country: US (occurrence: US)
  Receive Date: 20220310
  Receipt Date: 20220323
  Transmission Date: 20220424
  Serious: Yes (Other)
  Sender: FDA-Public Use
  Company Number: US-TEVA-2022-US-2014103

PATIENT
  Age: 79 Year
  Sex: Male

DRUGS (4)
  1. DEXAMETHASONE [Suspect]
     Active Substance: DEXAMETHASONE
     Indication: Plasmablastic lymphoma
     Dosage: 2 CYCLES
     Route: 065
     Dates: start: 201804
  2. DARATUMUMAB [Suspect]
     Active Substance: DARATUMUMAB
     Indication: Plasmablastic lymphoma
     Dosage: 2 CYCLES
     Route: 065
     Dates: start: 201804
  3. LENALIDOMIDE [Suspect]
     Active Substance: LENALIDOMIDE
     Indication: Plasmablastic lymphoma
     Dosage: 2 CYCLES
     Route: 065
     Dates: start: 201804
  4. PEMBROLIZUMAB [Suspect]
     Active Substance: PEMBROLIZUMAB
     Indication: Plasmablastic lymphoma
     Dosage: 200 MG EVERY 3 WEEKS
     Route: 042
     Dates: start: 201806

REACTIONS (9)
  - Urinary tract infection [Unknown]
  - Pneumonia [Unknown]
  - Ophthalmic herpes zoster [Unknown]
  - Cardiomyopathy [Recovering/Resolving]
  - Left ventricular dysfunction [Recovering/Resolving]
  - Pleural effusion [Unknown]
  - Cardiac failure [Unknown]
  - Dyspnoea [Unknown]
  - Drug ineffective [Unknown]

NARRATIVE: CASE EVENT DATE: 20190801
